FAERS Safety Report 6531597-3 (Version None)
Quarter: 2010Q1

REPORT INFORMATION
  Report Type: 
  Country: None (occurrence: None)
  Receive Date: 20100108
  Receipt Date: 20100105
  Transmission Date: 20100710
  Serious: Yes (Death, Other)
  Sender: FDA-Public Use
  Company Number: JP-BAYER-200913509BYL

PATIENT
  Age: 79 Year
  Sex: Male

DRUGS (17)
  1. NEXAVAR [Suspect]
     Indication: HEPATIC NEOPLASM MALIGNANT
     Dosage: TOTAL DAILY DOSE: 800 MG  UNIT DOSE: 200 MG
     Route: 048
     Dates: start: 20090706, end: 20090728
  2. NEXAVAR [Suspect]
     Dosage: TOTAL DAILY DOSE: 400 MG  UNIT DOSE: 200 MG
     Route: 048
     Dates: start: 20090728, end: 20090820
  3. NEXAVAR [Suspect]
     Dosage: TOTAL DAILY DOSE: 400 MG  UNIT DOSE: 200 MG
     Route: 048
     Dates: start: 20090820, end: 20090912
  4. MAGMITT [Concomitant]
     Indication: CONSTIPATION
     Dosage: BEFORE NEXAVAR ADMINISTRATION
     Route: 048
  5. GASTER D [Concomitant]
     Indication: ABDOMINAL PAIN UPPER
     Dosage: BEFORE NEXAVAR ADMINISTRATION
     Route: 048
  6. DIOVAN [Concomitant]
     Indication: HYPERTENSION
     Dosage: BEFORE NEXAVAR ADMINISTRATION
     Route: 048
  7. GLYCYRON [Concomitant]
     Indication: HEPATIC FUNCTION ABNORMAL
     Dosage: BEFORE NEXAVAR ADMINISTRATION
     Route: 048
  8. ADETPHOS [Concomitant]
     Indication: DIZZINESS
     Dosage: BEFORE NEXAVAR ADMINISTRATION
     Route: 048
  9. MERISLON [Concomitant]
     Indication: DIZZINESS
     Dosage: BEFORE NEXAVAR ADMINISTRATION
     Route: 048
  10. BIOFERMIN R [Concomitant]
     Indication: DIARRHOEA
     Dosage: BEFORE NEXAVAR ADMINISTRATION
     Route: 048
  11. DAIKENCHUTO [Concomitant]
     Indication: CONSTIPATION
     Dosage: BEFORE NEXAVAR ADMINISTRATION
     Route: 048
  12. PRIMPERAN TAB [Concomitant]
     Indication: NAUSEA
     Route: 048
     Dates: start: 20090709
  13. CODEINE PHOSPHATE [Concomitant]
     Indication: COUGH
     Route: 048
     Dates: start: 20090701
  14. GAIKYOKANSUI [Concomitant]
     Indication: COUGH
     Route: 048
     Dates: start: 20090701
  15. HACHIAZULE [Concomitant]
     Indication: STOMATITIS
     Route: 048
     Dates: start: 20090715
  16. VITAMEDIN [Concomitant]
     Indication: VITAMIN SUPPLEMENTATION
     Route: 048
     Dates: start: 20090715
  17. AMLODIN [Concomitant]
     Indication: HYPERTENSION
     Route: 048
     Dates: start: 20090715

REACTIONS (2)
  - HEPATIC FUNCTION ABNORMAL [None]
  - HEPATIC NEOPLASM MALIGNANT [None]
